FAERS Safety Report 13562239 (Version 20)
Quarter: 2021Q2

REPORT INFORMATION
  Report Type: Spontaneous
  Country: CA (occurrence: CA)
  Receive Date: 20170519
  Receipt Date: 20210419
  Transmission Date: 20210716
  Serious: Yes (Other)
  Sender: FDA-Public Use
  Company Number: CA-BRISTOL-MYERS SQUIBB COMPANY-BMS-2017-042730

PATIENT
  Age: 64 Year
  Sex: Female

DRUGS (26)
  1. ORENCIA [Suspect]
     Active Substance: ABATACEPT
     Indication: RHEUMATOID ARTHRITIS
     Dosage: UNK
     Route: 042
  2. METHOTREXATE. [Suspect]
     Active Substance: METHOTREXATE
     Dosage: 25 MILLIGRAM, BID
     Route: 048
  3. HUMIRA [Suspect]
     Active Substance: ADALIMUMAB
     Indication: RHEUMATOID ARTHRITIS
     Dosage: UNK
     Route: 058
  4. PREDNISONE. [Suspect]
     Active Substance: PREDNISONE
     Indication: RHEUMATOID ARTHRITIS
     Dosage: 15 MG, QD
     Route: 048
  5. GOLD [Concomitant]
     Active Substance: GOLD
     Indication: PRODUCT USED FOR UNKNOWN INDICATION
     Route: 065
  6. METHOTREXATE. [Suspect]
     Active Substance: METHOTREXATE
     Indication: RHEUMATOID ARTHRITIS
     Dosage: 15 MG, QWK
     Route: 048
     Dates: start: 1995, end: 2014
  7. METHOTREXATE. [Suspect]
     Active Substance: METHOTREXATE
     Indication: PRODUCT USED FOR UNKNOWN INDICATION
  8. TYLENOL [Concomitant]
     Active Substance: ACETAMINOPHEN
     Indication: PAIN
     Route: 065
  9. XELJANZ [Concomitant]
     Active Substance: TOFACITINIB CITRATE
     Indication: RHEUMATOID ARTHRITIS
     Dosage: 5 MG, UNK
     Route: 048
  10. CIMZIA [Suspect]
     Active Substance: CERTOLIZUMAB PEGOL
     Indication: RHEUMATOID ARTHRITIS
     Dosage: UNK
     Route: 058
     Dates: end: 201507
  11. METHOTREXATE. [Suspect]
     Active Substance: METHOTREXATE
     Indication: RHEUMATOID ARTHRITIS
     Dosage: UNK
     Route: 065
  12. CELEBREX [Concomitant]
     Active Substance: CELECOXIB
     Indication: PRODUCT USED FOR UNKNOWN INDICATION
     Route: 065
  13. PENICILLAMINE [Concomitant]
     Active Substance: PENICILLAMINE
     Indication: PRODUCT USED FOR UNKNOWN INDICATION
     Route: 065
  14. ENBREL [Suspect]
     Active Substance: ETANERCEPT
     Indication: RHEUMATOID ARTHRITIS
     Dosage: 50 MG, UNK
     Route: 058
  15. SIMPONI [Suspect]
     Active Substance: GOLIMUMAB
     Indication: RHEUMATOID ARTHRITIS
     Dosage: UNK
     Route: 058
  16. MORPHINE [Concomitant]
     Active Substance: MORPHINE
     Indication: PRODUCT USED FOR UNKNOWN INDICATION
     Route: 065
  17. RITUXAN [Suspect]
     Active Substance: RITUXIMAB
     Indication: PRODUCT USED FOR UNKNOWN INDICATION
     Route: 042
  18. TOFACITINIB [Concomitant]
     Active Substance: TOFACITINIB
     Indication: RHEUMATOID ARTHRITIS
     Dosage: 5.0 MG, BID
     Route: 048
  19. DILAUDID [Concomitant]
     Active Substance: HYDROMORPHONE HYDROCHLORIDE
     Indication: PAIN
     Route: 065
  20. METHOTREXATE. [Suspect]
     Active Substance: METHOTREXATE
     Dosage: 25 MILLIGRAM, CYCLICAL
     Route: 048
  21. REMICADE [Suspect]
     Active Substance: INFLIXIMAB
     Indication: RHEUMATOID ARTHRITIS
     Dosage: UNK
     Route: 042
  22. PLAQUENIL [HYDROXYCHLOROQUINE PHOSPHATE] [Suspect]
     Active Substance: HYDROXYCHLOROQUINE DIPHOSPHATE
     Indication: RHEUMATOID ARTHRITIS
     Dosage: 200 MG, BID
     Route: 048
  23. HYDROXYCHLOROQUINE SULFATE. [Suspect]
     Active Substance: HYDROXYCHLOROQUINE SULFATE
     Indication: RHEUMATOID ARTHRITIS
     Dosage: 200 MG, BID
     Route: 048
     Dates: start: 1990
  24. ACTEMRA [Suspect]
     Active Substance: TOCILIZUMAB
     Indication: PRODUCT USED FOR UNKNOWN INDICATION
     Route: 065
  25. SULFASALAZINE. [Suspect]
     Active Substance: SULFASALAZINE
     Indication: RHEUMATOID ARTHRITIS
     Route: 065
  26. HYDROXYCHLOROQUINE SULFATE. [Concomitant]
     Active Substance: HYDROXYCHLOROQUINE SULFATE
     Indication: RHEUMATOID ARTHRITIS
     Dosage: 200 MILLIGRAM, BID
     Route: 048

REACTIONS (17)
  - Arthralgia [Unknown]
  - Diabetes mellitus [Recovered/Resolved]
  - Mobility decreased [Recovered/Resolved]
  - Mouth ulceration [Recovered/Resolved]
  - Unevaluable event [Recovered/Resolved]
  - Hypersensitivity [Recovered/Resolved]
  - Spinal stenosis [Recovered/Resolved]
  - Drug ineffective [Recovered/Resolved]
  - Joint swelling [Unknown]
  - Neutropenia [Unknown]
  - Lip ulceration [Recovered/Resolved]
  - Treatment failure [Unknown]
  - Wheelchair user [Unknown]
  - Urinary tract infection [Recovered/Resolved]
  - Drug hypersensitivity [Recovered/Resolved]
  - Drug intolerance [Recovered/Resolved]
  - Therapeutic product effect decreased [Recovered/Resolved]
